FAERS Safety Report 22000622 (Version 7)
Quarter: 2024Q3

REPORT INFORMATION
  Report Type: Report from Study
  Country: US (occurrence: US)
  Receive Date: 20230216
  Receipt Date: 20240902
  Transmission Date: 20241017
  Serious: Yes (Disabling, Other)
  Sender: AMGEN
  Company Number: US-HORIZON THERAPEUTICS-HZN-2021-003947

PATIENT
  Age: 73 Year
  Sex: Male

DRUGS (32)
  1. TEPEZZA [Suspect]
     Active Substance: TEPROTUMUMAB-TRBW
     Indication: Endocrine ophthalmopathy
     Dosage: 20 MILLIGRAM/KILOGRAM, Q3WK (FIRST INFUSION)
     Route: 042
     Dates: start: 20210420
  2. TEPEZZA [Suspect]
     Active Substance: TEPROTUMUMAB-TRBW
     Dosage: UNK (FIFTH INFUSION)
     Route: 042
  3. TEPEZZA [Suspect]
     Active Substance: TEPROTUMUMAB-TRBW
     Dosage: UNK (EIGHTH INFUSION)
     Route: 042
     Dates: start: 202109
  4. VITAMIN C [Concomitant]
     Active Substance: ASCORBIC ACID
     Indication: Product used for unknown indication
     Dosage: 1000 MG, QD
     Route: 065
  5. ALBUTEROL SULFATE [Concomitant]
     Active Substance: ALBUTEROL SULFATE
     Indication: Product used for unknown indication
     Dosage: INHALE 2 PUFF BY INHALATION ROUTE EVERY 4 - 6 HOURS AS NEEDED
  6. ELIQUIS [Concomitant]
     Active Substance: APIXABAN
     Indication: Product used for unknown indication
     Dosage: 1 DOSAGE FORM (5 MG), BID
     Route: 048
  7. ATORVASTATIN [Concomitant]
     Active Substance: ATORVASTATIN
     Indication: Product used for unknown indication
     Dosage: 1 DOSAGE FORM, QD (20 MG)
     Route: 048
  8. FLECAINIDE [Concomitant]
     Active Substance: FLECAINIDE
     Indication: Product used for unknown indication
     Dosage: 1 DOSAGE FORM (50 MG), Q12H
     Route: 048
  9. METOPROLOL SUCCINATE [Concomitant]
     Active Substance: METOPROLOL SUCCINATE
     Indication: Product used for unknown indication
     Dosage: 1 DOSAGE FORM (25 MG), QD
     Route: 048
  10. TAMSULOSIN [Concomitant]
     Active Substance: TAMSULOSIN
     Indication: Product used for unknown indication
     Dosage: 1 DOSAGE FORM (0.4 MG), QD 1/2 HOUR FOLLOWING THE SAME MEAL EACH DAY
     Route: 048
  11. HYDROCHLOROTHIAZIDE\VALSARTAN [Concomitant]
     Active Substance: HYDROCHLOROTHIAZIDE\VALSARTAN
     Indication: Product used for unknown indication
     Dosage: 1 DOSAGE FORM (160 MG-25 MG)
     Route: 048
  12. METHIMAZOLE [Concomitant]
     Active Substance: METHIMAZOLE
     Indication: Product used for unknown indication
     Dosage: 1 DOSAGE FORM (5 MG), QD
     Route: 048
  13. METHIMAZOLE [Concomitant]
     Active Substance: METHIMAZOLE
     Dosage: 2.5 GRAM, QOD
     Route: 048
  14. MAGNESIUM [Concomitant]
     Active Substance: MAGNESIUM
     Dosage: (1 BY MOUTH EVERY DAY)
     Route: 048
  15. ASPIRIN [Concomitant]
     Active Substance: ASPIRIN
     Dosage: (1 BY MOUTH EVERY DAY)
     Route: 048
  16. SILDENAFIL CITRATE [Concomitant]
     Active Substance: SILDENAFIL CITRATE
     Dosage: (3 TABLETS DAILY BY MOUTH AS NEEDED ONE TO HOUR PRIOR TO SEXUAL ACTIVITY ON EMPTY STOMACH)
     Route: 048
  17. TAMSULOSIN HYDROCHLORIDE [Concomitant]
     Active Substance: TAMSULOSIN HYDROCHLORIDE
     Dosage: 0.4 MILLIGRAM, QD 1/2 HOUR FOLLOWING THE SAME MEAL EACH DAY
     Route: 048
  18. ACETYLCYSTEINE [Concomitant]
     Active Substance: ACETYLCYSTEINE
     Dosage: 1 CAP BY MOUTH EVERY DAY
     Route: 048
  19. COENZYME Q10 [Concomitant]
     Active Substance: DIETARY SUPPLEMENT\UBIDECARENONE
     Dosage: TAKE 1 TABLET BY MOUTH DAILY
     Route: 048
     Dates: start: 20111213
  20. VALSARTAN [Concomitant]
     Active Substance: VALSARTAN
     Dosage: TAKE 1 TABLET BY MOUTH DAILY
     Route: 048
     Dates: start: 20150105
  21. ALFUZOSIN [Concomitant]
     Active Substance: ALFUZOSIN
     Dosage: TAKE 1 TABLET BY MOUTH DAILY
     Route: 042
  22. SPIRIVA [Concomitant]
     Active Substance: TIOTROPIUM BROMIDE MONOHYDRATE
     Dosage: INHALE 1 PUFF BY MOUTH DAILY
     Route: 048
  23. CHARCOAL [Concomitant]
     Active Substance: ACTIVATED CHARCOAL
     Dosage: TAKE 3 CAPSULES BY MOUTH DAILY
     Route: 048
     Dates: start: 20171212
  24. ALPHA LIPOIC ACID [Concomitant]
     Active Substance: .ALPHA.-LIPOIC ACID
     Dosage: UNK
     Route: 065
     Dates: start: 20171212
  25. TESTOSTERONE [Concomitant]
     Active Substance: TESTOSTERONE
     Dosage: APPLY 2 PUMPS TO SKIN DAILY
  26. TROPICAMIDE [Concomitant]
     Active Substance: TROPICAMIDE
  27. PHENYLEPHRINE [Concomitant]
     Active Substance: PHENYLEPHRINE HYDROCHLORIDE
  28. PREDNISOLONE ACETATE [Concomitant]
     Active Substance: PREDNISOLONE ACETATE
     Dosage: 1 DROP IN THE LEFT EYE, TID
  29. BROMFENAC [Concomitant]
     Active Substance: BROMFENAC
     Dosage: 0.075 BY DOCTOR %
  30. PREDNISOLONE [Concomitant]
     Active Substance: PREDNISOLONE
     Dosage: 1 DROP IN THE LEFT EYE, TID STARTING 3 DAYS
  31. MOXIFLOXACIN [Concomitant]
     Active Substance: MOXIFLOXACIN
     Dosage: 1 MILLIGRAM/1ML
  32. NEPAFENAC [Concomitant]
     Active Substance: NEPAFENAC

REACTIONS (24)
  - Deafness permanent [Not Recovered/Not Resolved]
  - Disability [Unknown]
  - Physical disability [Unknown]
  - Exophthalmos [Unknown]
  - Fatigue [Unknown]
  - Tinnitus [Unknown]
  - Dry skin [Recovering/Resolving]
  - Muscle spasms [Not Recovered/Not Resolved]
  - Drug ineffective [Not Recovered/Not Resolved]
  - Injury [Unknown]
  - Pain [Unknown]
  - Economic problem [Unknown]
  - Quality of life decreased [Unknown]
  - Concomitant disease aggravated [Unknown]
  - Emotional distress [Unknown]
  - Anxiety [Unknown]
  - Discomfort [Unknown]
  - Visual impairment [Unknown]
  - Dizziness [Not Recovered/Not Resolved]
  - Balance disorder [Not Recovered/Not Resolved]
  - Diplopia [Not Recovered/Not Resolved]
  - Joint injury [Recovering/Resolving]
  - Dermatochalasis [Unknown]
  - Hypertension [Unknown]

NARRATIVE: CASE EVENT DATE: 20230404
